FAERS Safety Report 11578885 (Version 2)
Quarter: 2015Q4

REPORT INFORMATION
  Report Type: Spontaneous
  Country: GR (occurrence: GR)
  Receive Date: 20150930
  Receipt Date: 20151006
  Transmission Date: 20160304
  Serious: Yes (Hospitalization, Other)
  Sender: FDA-Public Use
  Company Number: GR-PFIZER INC-2015320088

PATIENT
  Age: 68 Year
  Sex: Male

DRUGS (3)
  1. ATORVASTATIN CALCIUM. [Concomitant]
     Active Substance: ATORVASTATIN CALCIUM
     Dosage: UNK
  2. ATACAND [Concomitant]
     Active Substance: CANDESARTAN CILEXETIL
  3. ESBRIET [Suspect]
     Active Substance: PIRFENIDONE
     Dosage: UNK

REACTIONS (4)
  - Idiopathic pulmonary fibrosis [Unknown]
  - Diarrhoea [Unknown]
  - Renal impairment [Recovered/Resolved]
  - Skin hyperpigmentation [Not Recovered/Not Resolved]

NARRATIVE: CASE EVENT DATE: 2015
